FAERS Safety Report 8696383 (Version 2)
Quarter: 2012Q4

REPORT INFORMATION
  Report Type: 
  Country: US (occurrence: US)
  Receive Date: 20120801
  Receipt Date: 20121002
  Transmission Date: 20130627
  Serious: No
  Sender: FDA-Public Use
  Company Number: US-009507513-2012SP034049

PATIENT
  Age: 22 Year
  Sex: Female
  Weight: 113.4 kg

DRUGS (1)
  1. IMPLANON [Suspect]
     Indication: CONTRACEPTION
     Dosage: UNK
     Route: 059
     Dates: start: 20110217, end: 20120621

REACTIONS (2)
  - Medical device complication [Unknown]
  - No adverse event [Unknown]
